FAERS Safety Report 8814282 (Version 2)
Quarter: 2012Q4

REPORT INFORMATION
  Report Type: 
  Country: US (occurrence: US)
  Receive Date: 20120928
  Receipt Date: 20121017
  Transmission Date: 20130627
  Serious: Yes (Life-Threatening, Hospitalization)
  Sender: FDA-Public Use
  Company Number: US-JNJFOC-20120910412

PATIENT
  Age: 69 Year
  Sex: Female

DRUGS (4)
  1. NUCYNTA IR [Suspect]
     Indication: ANALGESIC THERAPY
     Dosage: 4 in one day
     Route: 048
  2. METHADONE [Concomitant]
     Route: 048
  3. VALIUM [Concomitant]
     Dosage: 4 daily
     Route: 048
  4. TRAZODONE [Concomitant]
     Route: 048

REACTIONS (6)
  - Unresponsive to stimuli [Not Recovered/Not Resolved]
  - Cardiac arrest [Recovered/Resolved]
  - Overdose [Not Recovered/Not Resolved]
  - Convulsion [Recovered/Resolved]
  - Withdrawal syndrome [Not Recovered/Not Resolved]
  - Drug screen negative [Unknown]
